FAERS Safety Report 11743767 (Version 2)
Quarter: 2015Q4

REPORT INFORMATION
  Report Type: Report from Study
  Country: DO (occurrence: DO)
  Receive Date: 20151116
  Receipt Date: 20151125
  Transmission Date: 20160304
  Serious: Yes (Death, Other)
  Sender: FDA-Public Use
  Company Number: DO-ABBVIE-15P-279-1499958-00

PATIENT
  Age: 66 Year
  Sex: Male

DRUGS (1)
  1. ZEMPLAR [Suspect]
     Active Substance: PARICALCITOL
     Indication: HYPERPARATHYROIDISM SECONDARY
     Route: 042
     Dates: start: 20150612

REACTIONS (4)
  - Myocardial infarction [Fatal]
  - Cardiogenic shock [Fatal]
  - Myocardial infarction [Unknown]
  - Pulmonary embolism [Fatal]

NARRATIVE: CASE EVENT DATE: 20151104
